FAERS Safety Report 12686518 (Version 1)
Quarter: 2016Q3

REPORT INFORMATION
  Report Type: Spontaneous
  Country: US (occurrence: US)
  Receive Date: 20160825
  Receipt Date: 20160825
  Transmission Date: 20161109
  Serious: No
  Sender: FDA-Public Use
  Company Number: US-JAZZ-2016-US-007298

PATIENT
  Sex: Female

DRUGS (17)
  1. LAMICTAL [Concomitant]
     Active Substance: LAMOTRIGINE
  2. LAMISIL [Concomitant]
     Active Substance: TERBINAFINE HYDROCHLORIDE
  3. MIDODRINE HCL [Concomitant]
     Active Substance: MIDODRINE HYDROCHLORIDE
  4. LOPRESSOR [Concomitant]
     Active Substance: METOPROLOL TARTRATE
  5. XYREM [Suspect]
     Active Substance: SODIUM OXYBATE
     Dosage: 2.25 G, BID
     Route: 048
     Dates: start: 201504
  6. FLORINEF ACETATE [Concomitant]
     Active Substance: FLUDROCORTISONE ACETATE
  7. ZOLOFT [Concomitant]
     Active Substance: SERTRALINE HYDROCHLORIDE
  8. PRILOSEC [Concomitant]
     Active Substance: OMEPRAZOLE MAGNESIUM
  9. SEROQUEL [Concomitant]
     Active Substance: QUETIAPINE FUMARATE
  10. TOPAMAX [Concomitant]
     Active Substance: TOPIRAMATE
  11. XYREM [Suspect]
     Active Substance: SODIUM OXYBATE
     Dosage: 2.25 G, BID
     Route: 048
     Dates: start: 201111, end: 201111
  12. XYREM [Suspect]
     Active Substance: SODIUM OXYBATE
     Indication: NARCOLEPSY
     Dosage: 1.5 G, BID
     Route: 048
     Dates: start: 201111, end: 201111
  13. XYREM [Suspect]
     Active Substance: SODIUM OXYBATE
     Dosage: 3 G, BID
     Route: 048
     Dates: start: 201111, end: 2012
  14. PROVIGIL [Concomitant]
     Active Substance: MODAFINIL
  15. IMITREX [Concomitant]
     Active Substance: SUMATRIPTAN SUCCINATE
  16. NUVIGIL [Concomitant]
     Active Substance: ARMODAFINIL
  17. PEPCID [Concomitant]
     Active Substance: FAMOTIDINE

REACTIONS (5)
  - Gastrooesophageal reflux disease [Not Recovered/Not Resolved]
  - Pre-existing condition improved [Unknown]
  - Angina pectoris [Not Recovered/Not Resolved]
  - Condition aggravated [Not Recovered/Not Resolved]
  - Therapeutic response unexpected [Unknown]
